FAERS Safety Report 10238258 (Version 1)
Quarter: 2014Q2

REPORT INFORMATION
  Report Type: Spontaneous
  Country: US (occurrence: US)
  Receive Date: 20140616
  Receipt Date: 20140616
  Transmission Date: 20141212
  Serious: No
  Sender: FDA-Public Use
  Company Number: US-PFIZER INC-2014163841

PATIENT
  Age: 53 Year
  Sex: Female
  Weight: 65.31 kg

DRUGS (1)
  1. LYRICA [Suspect]
     Indication: ARTHRALGIA
     Dosage: UNK, 2X/DAY

REACTIONS (1)
  - Blood cholesterol increased [Unknown]
